FAERS Safety Report 15843214 (Version 1)
Quarter: 2018Q4

REPORT INFORMATION
  Report Type: Spontaneous
  Country: US (occurrence: US)
  Receive Date: 20181226
  Receipt Date: 20181226
  Transmission Date: 20190205
  Serious: No
  Sender: FDA-Public Use
  Company Number: None

PATIENT
  Age: 75 Year
  Sex: Female

DRUGS (1)
  1. CYCLOSPORINE MODIFIED [Suspect]
     Active Substance: CYCLOSPORINE
     Route: 048
     Dates: start: 20181025

REACTIONS (5)
  - Muscular weakness [None]
  - Stomatitis [None]
  - Contusion [None]
  - Glomerulonephritis [None]
  - Nephritic syndrome [None]

NARRATIVE: CASE EVENT DATE: 201812
